FAERS Safety Report 10760590 (Version 1)
Quarter: 2015Q1

REPORT INFORMATION
  Report Type: Spontaneous
  Country: JP (occurrence: None)
  Receive Date: 20150202
  Receipt Date: 20150202
  Transmission Date: 20150721
  Serious: Yes (Death, Other)
  Sender: FDA-Public Use
  Company Number: 2015SA06737

PATIENT
  Age: 45 Year
  Sex: Male
  Weight: 61 kg

DRUGS (5)
  1. KALETRA [Suspect]
     Active Substance: LOPINAVIR\RITONAVIR
     Indication: HIV INFECTION
  2. DIPHENHYDRAMINE (DIPHENHYDRAMINE) [Suspect]
     Active Substance: DIPHENHYDRAMINE
  3. SILDENAFIL CITRATE (SILDENAFIL CITRATE) UNKNOWN [Suspect]
     Active Substance: SILDENAFIL CITRATE
     Route: 048
  4. CLARITHROMYCIN (CLARITHROMYCIN) UNKNOWN [Suspect]
     Active Substance: CLARITHROMYCIN
     Indication: RASH
     Dosage: FEW WEEK(S)
  5. EPZICOM [Concomitant]
     Active Substance: ABACAVIR SULFATE\LAMIVUDINE

REACTIONS (11)
  - Arrhythmia [None]
  - Sudden cardiac death [None]
  - Myocardial fibrosis [None]
  - Drug interaction [None]
  - Liver injury [None]
  - Mesenteric haematoma [None]
  - Cardiac failure acute [None]
  - Pulmonary oedema [None]
  - Haemorrhage [None]
  - Toxicity to various agents [None]
  - Pulmonary congestion [None]
